FAERS Safety Report 7770690-4 (Version None)
Quarter: 2011Q3

REPORT INFORMATION
  Report Type: 
  Country: None (occurrence: None)
  Receive Date: 20110922
  Receipt Date: 20110228
  Transmission Date: 20111222
  Serious: No
  Sender: FDA-Public Use
  Company Number: US-ASTRAZENECA-2011SE10959

PATIENT
  Age: 57 Year
  Sex: Male

DRUGS (10)
  1. DIVALPROIC ACID [Concomitant]
  2. SEROQUEL [Suspect]
     Route: 048
  3. SEROQUEL [Suspect]
     Route: 048
  4. LEVOTHYROXINE SODIUM [Concomitant]
  5. SEROQUEL [Suspect]
     Indication: MAJOR DEPRESSION
     Route: 048
  6. SEROQUEL [Suspect]
     Indication: ANXIETY
     Route: 048
  7. SEROQUEL [Suspect]
     Indication: PANIC DISORDER
     Route: 048
  8. CLONAZEPAM [Concomitant]
  9. SEROQUEL [Suspect]
     Route: 048
  10. FLUOXETINE [Concomitant]

REACTIONS (5)
  - DEPRESSION [None]
  - WRONG TECHNIQUE IN DRUG USAGE PROCESS [None]
  - INCORRECT DOSE ADMINISTERED [None]
  - HYPERSOMNIA [None]
  - ANXIETY [None]
